FAERS Safety Report 16250232 (Version 1)
Quarter: 2019Q2

REPORT INFORMATION
  Report Type: Spontaneous
  Country: US (occurrence: US)
  Receive Date: 20190426
  Receipt Date: 20190426
  Transmission Date: 20190711
  Serious: Yes (Other)
  Sender: FDA-Public Use
  Company Number: None

PATIENT
  Age: 40 Year
  Sex: Female
  Weight: 67.5 kg

DRUGS (4)
  1. CLONIDINE. [Suspect]
     Active Substance: CLONIDINE
     Indication: HYPERTENSION
     Dosage: ?          QUANTITY:1 PATCH(ES);OTHER FREQUENCY:1 X PER WEEK;?
     Route: 061
     Dates: start: 20190310
  2. LOSARTAN. [Concomitant]
     Active Substance: LOSARTAN
  3. AMLODIMINE [Concomitant]
  4. SPIROLACTIN [Concomitant]

REACTIONS (4)
  - Skin irritation [None]
  - Product complaint [None]
  - Product adhesion issue [None]
  - Application site irritation [None]

NARRATIVE: CASE EVENT DATE: 20190401
